FAERS Safety Report 9539644 (Version 1)
Quarter: 2013Q3

REPORT INFORMATION
  Report Type: Spontaneous
  Country: US (occurrence: US)
  Receive Date: 20130920
  Receipt Date: 20130920
  Transmission Date: 20140515
  Serious: Yes (Death)
  Sender: FDA-Public Use
  Company Number: US-NAPPMUNDI-USA-2012-0094506

PATIENT
  Age: 43 Year
  Sex: Male

DRUGS (1)
  1. DILAUDID INJECTION [Suspect]
     Indication: PAIN
     Dosage: 2 MG, THRICE
     Route: 042

REACTIONS (2)
  - Overdose [Fatal]
  - Pulse absent [Fatal]
